FAERS Safety Report 25842159 (Version 1)
Quarter: 2025Q3

REPORT INFORMATION
  Report Type: Report from Study
  Country: CA (occurrence: CA)
  Receive Date: 20250924
  Receipt Date: 20250924
  Transmission Date: 20251021
  Serious: Yes (Death)
  Sender: HLS THERAPEUTICS
  Company Number: CA-HLS-202502397

PATIENT
  Sex: Male

DRUGS (1)
  1. CLOZARIL [Suspect]
     Active Substance: CLOZAPINE
     Indication: Psychotic disorder
     Route: 048
     Dates: start: 20220404

REACTIONS (1)
  - Death [Fatal]
